FAERS Safety Report 13474968 (Version 1)
Quarter: 2017Q2

REPORT INFORMATION
  Report Type: Not Available
  Country: None (occurrence: US)
  Receive Date: 20170424
  Receipt Date: 20170424
  Transmission Date: 20170830
  Serious: No
  Sender: FDA-Public Use
  Company Number: US-AKORN-36363

PATIENT

DRUGS (1)
  1. ERYTHROMYCIN OPHTHALMIC OINTMENT 0.5%, USP [Suspect]
     Active Substance: ERYTHROMYCIN

REACTIONS (1)
  - Hypersensitivity [Unknown]
